FAERS Safety Report 5396759-X (Version None)
Quarter: 2007Q3

REPORT INFORMATION
  Report Type: 
  Country: None (occurrence: None)
  Receive Date: 20070725
  Receipt Date: 20070602
  Transmission Date: 20080115
  Serious: Yes (Hospitalization, Other)
  Sender: FDA-Public Use
  Company Number: US-PURDUE-USA_2007_0028325

PATIENT
  Sex: Male

DRUGS (1)
  1. OXYCONTIN [Suspect]
     Indication: MIGRAINE
     Dates: start: 19980801, end: 20000601

REACTIONS (3)
  - ANAEMIA [None]
  - GASTRIC DISORDER [None]
  - HOSPITALISATION [None]
